FAERS Safety Report 12300732 (Version 3)
Quarter: 2016Q2

REPORT INFORMATION
  Report Type: Spontaneous
  Country: US (occurrence: US)
  Receive Date: 20160425
  Receipt Date: 20160512
  Transmission Date: 20160815
  Serious: Yes (Other)
  Sender: FDA-Public Use
  Company Number: US-ROCHE-1741829

PATIENT
  Age: 49 Year
  Sex: Female
  Weight: 94 kg

DRUGS (17)
  1. HERCEPTIN [Suspect]
     Active Substance: TRASTUZUMAB
     Indication: HER-2 POSITIVE BREAST CANCER
     Route: 042
     Dates: start: 20150928
  2. MAXZIDE [Concomitant]
     Active Substance: HYDROCHLOROTHIAZIDE\TRIAMTERENE
     Dosage: 37.5-2.5 MG PER TABLET, 30 TABLETS
     Route: 048
  3. LEVAQUIN [Concomitant]
     Active Substance: LEVOFLOXACIN
     Dosage: FOR 10 DAYS
     Route: 065
     Dates: start: 20160129
  4. DICLOFENAC SODIUM. [Concomitant]
     Active Substance: DICLOFENAC SODIUM
     Route: 048
  5. QVAR [Concomitant]
     Active Substance: BECLOMETHASONE DIPROPIONATE
     Dosage: 80 MCG/ACTUATION INHALER
     Route: 065
  6. TYLENOL EXTRA STRENGTH [Concomitant]
     Active Substance: ACETAMINOPHEN
     Route: 048
  7. HERCEPTIN [Suspect]
     Active Substance: TRASTUZUMAB
     Dosage: IN SODIUM CHLORIDE 0.9 % 250 ML CHEMO INFUSION
     Route: 042
  8. PERJETA [Suspect]
     Active Substance: PERTUZUMAB
     Dosage: IN SODIUM CHLORIDE 0.9 % 250 ML CHEMO INFUSION
     Route: 042
     Dates: start: 20160418
  9. ASMANEX [Concomitant]
     Active Substance: MOMETASONE FUROATE
     Dosage: TWISTHALER INHALER, 120 DOSES
     Route: 065
  10. EMLA [Concomitant]
     Active Substance: LIDOCAINE\PRILOCAINE
     Dosage: APPLY 1 APPLICATION AS NEEDED
     Route: 061
  11. PERJETA [Suspect]
     Active Substance: PERTUZUMAB
     Indication: HER-2 POSITIVE BREAST CANCER
     Route: 042
     Dates: start: 20150928
  12. MUCINEX [Concomitant]
     Active Substance: GUAIFENESIN
     Route: 048
  13. DECADRON [Concomitant]
     Active Substance: DEXAMETHASONE
  14. SODIUM CHLORIDE. [Concomitant]
     Active Substance: SODIUM CHLORIDE
     Dosage: 0.9 % 250 ML CHEMO INFUSION
     Route: 065
  15. PERCOCET [Concomitant]
     Active Substance: ACETAMINOPHEN\OXYCODONE HYDROCHLORIDE
     Dosage: 5-325 MG PER TABLET, AS NEEDED
     Route: 048
  16. TAXOTERE [Suspect]
     Active Substance: DOCETAXEL
     Indication: HER-2 POSITIVE BREAST CANCER
     Route: 042
     Dates: start: 20150928, end: 20160229
  17. ATIVAN [Concomitant]
     Active Substance: LORAZEPAM
     Dosage: EVERY 8 HOURS AS NEEDED
     Route: 048

REACTIONS (19)
  - Alopecia [Unknown]
  - Blepharospasm [Unknown]
  - Pulmonary mass [Unknown]
  - Catheter site pain [Unknown]
  - Catheter site erythema [Unknown]
  - Orthostatic hypotension [Unknown]
  - Diarrhoea [Unknown]
  - Headache [Unknown]
  - Weight increased [Unknown]
  - Fatigue [Unknown]
  - Haematochezia [Recovered/Resolved]
  - Dyspepsia [Unknown]
  - Weight decreased [Unknown]
  - Oedema peripheral [Unknown]
  - Sinusitis [Unknown]
  - Organising pneumonia [Unknown]
  - Pulmonary toxicity [Unknown]
  - Nasal congestion [Recovered/Resolved]
  - Lymphoma [Unknown]

NARRATIVE: CASE EVENT DATE: 20160317
